FAERS Safety Report 4767223-3 (Version None)
Quarter: 2005Q3

REPORT INFORMATION
  Report Type: 
  Country: None (occurrence: None)
  Receive Date: 20050912
  Receipt Date: 20050912
  Transmission Date: 20060218
  Serious: Yes (Hospitalization, Other)
  Sender: FDA-Public Use
  Company Number: None

PATIENT
  Sex: Male
  Weight: 89 kg

DRUGS (5)
  1. CASODEX [Suspect]
     Indication: PROSTATE CANCER
     Dosage: SEE IMAGE
     Route: 048
     Dates: start: 20020723, end: 20030204
  2. CASODEX [Suspect]
     Indication: PROSTATE CANCER
     Dosage: SEE IMAGE
     Route: 048
     Dates: start: 20050902
  3. ZOLADEX [Suspect]
     Dosage: SEE IMAGE
     Route: 058
     Dates: start: 20020723, end: 20030204
  4. ZOLADEX [Suspect]
     Dosage: SEE IMAGE
     Route: 058
     Dates: start: 20050902
  5. RADIATION [Suspect]

REACTIONS (2)
  - ANGINA UNSTABLE [None]
  - ELECTROCARDIOGRAM T WAVE ABNORMAL [None]
